FAERS Safety Report 8238197 (Version 5)
Quarter: 2012Q4

REPORT INFORMATION
  Report Type: 
  Country: US (occurrence: US)
  Receive Date: 20111109
  Receipt Date: 20121016
  Transmission Date: 20130627
  Serious: Yes (Hospitalization, Other)
  Sender: FDA-Public Use
  Company Number: PHEH2011US08455

PATIENT
  Age: 43 Year
  Sex: Female

DRUGS (9)
  1. GILENYA [Suspect]
     Indication: MULTIPLE SCLEROSIS
     Dosage: 0.5 mg, QD
     Route: 048
     Dates: start: 201109
  2. GILENYA [Suspect]
     Dosage: 0.5 mg, QD
  3. SOLU-MEDROL [Concomitant]
     Indication: MULTIPLE SCLEROSIS
     Dosage: UNK UKN, monthly
     Route: 042
  4. FAMPRIDINE [Concomitant]
     Indication: MULTIPLE SCLEROSIS
     Dosage: 10 mg, BID
     Route: 048
     Dates: start: 2010, end: 20111031
  5. BACLOFEN [Concomitant]
     Indication: MULTIPLE SCLEROSIS
     Dosage: 10 mg, TID
     Route: 048
  6. BACLOFEN [Concomitant]
     Dosage: 20 mg, QID
  7. ACTONEL [Concomitant]
     Indication: MULTIPLE SCLEROSIS
     Dosage: UNK UKN, UNK
     Route: 048
  8. ATENOLOL [Concomitant]
     Indication: HYPERTENSION
     Dosage: 50 mg, BID
     Route: 048
  9. DETROL [Concomitant]
     Dosage: 4 mg, BID

REACTIONS (8)
  - Grand mal convulsion [Recovered/Resolved]
  - Loss of consciousness [Recovered/Resolved]
  - Muscle rigidity [Recovered/Resolved]
  - Confusional state [Recovered/Resolved]
  - Convulsion [Recovered/Resolved]
  - Memory impairment [Recovered/Resolved]
  - Liver disorder [Unknown]
  - Blood pressure increased [Unknown]
